FAERS Safety Report 6263357-5 (Version None)
Quarter: 2009Q3

REPORT INFORMATION
  Report Type: 
  Country: None (occurrence: None)
  Receive Date: 20090710
  Receipt Date: 20080828
  Transmission Date: 20100115
  Serious: No
  Sender: FDA-Public Use
  Company Number: A0736488A

PATIENT
  Age: 69 Year
  Sex: Female
  Weight: 58.6 kg

DRUGS (6)
  1. FLOVENT [Suspect]
     Indication: ASTHMA
     Route: 055
  2. ALBUTEROL [Concomitant]
     Indication: ASTHMA
     Route: 055
     Dates: start: 20030101
  3. ALBUTEROL [Concomitant]
  4. VITAMINS [Concomitant]
  5. KLONOPIN [Concomitant]
  6. ZOLOFT [Concomitant]

REACTIONS (1)
  - CANDIDIASIS [None]
